FAERS Safety Report 5499413-9 (Version None)
Quarter: 2007Q4

REPORT INFORMATION
  Report Type: 
  Country: None (occurrence: None)
  Receive Date: 20071026
  Receipt Date: 20071022
  Transmission Date: 20080405
  Serious: Yes (Other)
  Sender: FDA-Public Use
  Company Number: B0492075A

PATIENT
  Age: 21 Year
  Sex: Female

DRUGS (3)
  1. LAMICTAL [Suspect]
     Route: 048
  2. TETRALYSAL [Suspect]
     Route: 061
     Dates: start: 20070701
  3. BENZOYL PEROXIDE [Concomitant]
     Indication: ACNE
     Route: 061

REACTIONS (2)
  - CONVULSIVE THRESHOLD LOWERED [None]
  - DRUG INTERACTION [None]
